FAERS Safety Report 10222331 (Version 1)
Quarter: 2014Q2

REPORT INFORMATION
  Report Type: Spontaneous
  Country: GB (occurrence: GB)
  Receive Date: 20140606
  Receipt Date: 20140606
  Transmission Date: 20141212
  Serious: Yes (Other)
  Sender: FDA-Public Use
  Company Number: GB-ACTAVISPR-2013-25304

PATIENT
  Age: 56 Year
  Sex: Female

DRUGS (7)
  1. AZATHIOPRINE (UNKNOWN) [Suspect]
     Indication: IMMUNOSUPPRESSION
     Route: 065
  2. AZATHIOPRINE (UNKNOWN) [Suspect]
     Indication: STEROID THERAPY
  3. HYDROCORTISONE (UNKNOWN) [Suspect]
     Indication: DERMATITIS ATOPIC
     Route: 061
  4. PREDNISOLONE (UNKNOWN) [Suspect]
     Indication: ECZEMA
     Route: 048
  5. PREDNISOLONE (UNKNOWN) [Suspect]
     Indication: ASTHMA
  6. BETHAMETHASONE VALERATE OINTMENT [Concomitant]
     Indication: PRODUCT USED FOR UNKNOWN INDICATION
     Route: 061
  7. BECLOMETHASONE DIPROPIONATE INHALER [Concomitant]
     Indication: ASTHMA

REACTIONS (1)
  - Cushing^s syndrome [Unknown]
